FAERS Safety Report 26188999 (Version 1)
Quarter: 2025Q4

REPORT INFORMATION
  Report Type: Spontaneous
  Country: CN (occurrence: CN)
  Receive Date: 20251223
  Receipt Date: 20251223
  Transmission Date: 20260118
  Serious: Yes (Life-Threatening, Other)
  Sender: USV PRIVATE LIMITED
  Company Number: CN-MLMSERVICE-20251203-PI737823-00336-1

PATIENT
  Age: 51 Year
  Sex: Female

DRUGS (2)
  1. ZOLEDRONIC ACID [Suspect]
     Active Substance: ZOLEDRONIC ACID
     Indication: Metastases to bone
     Dosage: EVERY 3-4 WEEKS
     Dates: start: 2019
  2. ZOLEDRONIC ACID [Suspect]
     Active Substance: ZOLEDRONIC ACID
     Indication: Metastases to bone
     Dosage: A REDUCTION IN ZOLEDRONIC ACID DOSAGE (3.0-3.5 MG EVERY 4 WEEKS)
     Dates: start: 202101, end: 2021

REACTIONS (1)
  - End stage renal disease [Recovering/Resolving]

NARRATIVE: CASE EVENT DATE: 20210101
